FAERS Safety Report 5167616-9 (Version None)
Quarter: 2006Q4

REPORT INFORMATION
  Report Type: 
  Country: None (occurrence: None)
  Receive Date: 20060919
  Receipt Date: 20060616
  Transmission Date: 20070319
  Serious: Yes (Other)
  Sender: FDA-Public Use
  Company Number: 2006US001321

PATIENT
  Age: 82 Year
  Sex: Female

DRUGS (7)
  1. VESICARE [Suspect]
     Indication: HYPERTONIC BLADDER
     Dosage: 5 MG,UID/QD
     Dates: start: 20060615, end: 20060616
  2. COUMADIN [Concomitant]
  3. DILTIAZEM [Concomitant]
  4. THYROID TAB [Concomitant]
  5. DIURETICS [Concomitant]
  6. GLYBURIDE [Concomitant]
  7. DINACOR [Concomitant]

REACTIONS (1)
  - URINARY RETENTION [None]
